FAERS Safety Report 20391526 (Version 2)
Quarter: 2022Q1

REPORT INFORMATION
  Report Type: Spontaneous
  Country: BE (occurrence: BE)
  Receive Date: 20220128
  Receipt Date: 20220201
  Transmission Date: 20220423
  Serious: Yes (Other)
  Sender: FDA-Public Use
  Company Number: BE-BAYER-2022A010522

PATIENT
  Age: 57 Year
  Sex: Female

DRUGS (2)
  1. REGORAFENIB [Suspect]
     Active Substance: REGORAFENIB
     Indication: Soft tissue sarcoma
     Dosage: UNK
     Dates: start: 201903, end: 201906
  2. COPANLISIB [Concomitant]
     Active Substance: COPANLISIB
     Dosage: UNK

REACTIONS (2)
  - Soft tissue sarcoma [None]
  - Off label use [None]

NARRATIVE: CASE EVENT DATE: 20190101
